FAERS Safety Report 5046892-7 (Version None)
Quarter: 2006Q2

REPORT INFORMATION
  Report Type: 
  Country: None (occurrence: None)
  Receive Date: 20060630
  Receipt Date: 20060616
  Transmission Date: 20061013
  Serious: Yes (Life-Threatening)
  Sender: FDA-Public Use
  Company Number: 111069ISR

PATIENT
  Sex: Male

DRUGS (8)
  1. GLATIRAMER ACETATE [Suspect]
     Indication: MULTIPLE SCLEROSIS
     Dosage: 20 MILLIGRAM SUBCUTANEOUS
     Route: 058
     Dates: start: 20060401, end: 20060616
  2. BISOPROLOL FUMARATE [Concomitant]
  3. POTASSIUM IODIDE [Concomitant]
  4. GABAPENTIN [Concomitant]
  5. OXCARBAZEPINE [Concomitant]
  6. VENLAFAXINE HCL [Concomitant]
  7. DISTIGMINE BROMIDE [Concomitant]
  8. ARIPIPRAZOLE [Concomitant]

REACTIONS (2)
  - POST PROCEDURAL HAEMORRHAGE [None]
  - RESPIRATORY ARREST [None]
